FAERS Safety Report 5477813-0 (Version None)
Quarter: 2007Q4

REPORT INFORMATION
  Report Type: 
  Country: None (occurrence: None)
  Receive Date: 20071004
  Receipt Date: 20070924
  Transmission Date: 20080405
  Serious: Yes (Hospitalization)
  Sender: FDA-Public Use
  Company Number: DK-BAXTER-2007BH007609

PATIENT
  Age: 75 Year
  Sex: Male
  Weight: 69 kg

DRUGS (15)
  1. DIANEAL [Suspect]
     Indication: PERITONEAL DIALYSIS
     Route: 033
     Dates: start: 20060921
  2. PRIMPERAN [Concomitant]
  3. PAMOL [Concomitant]
  4. NEORECORMON ^ROCHE^ [Concomitant]
  5. HJERDYL [Concomitant]
  6. SIMVASTATIN [Concomitant]
  7. IRON [Concomitant]
  8. FURIX [Concomitant]
  9. KALEORID [Concomitant]
  10. IMOZOP [Concomitant]
  11. PERSANTIN [Concomitant]
  12. LAKTULOSE ^DAK^ [Concomitant]
  13. TRIATEC [Concomitant]
  14. RENAGEL [Concomitant]
  15. RENAGEL [Concomitant]

REACTIONS (3)
  - DEHYDRATION [None]
  - HYPOTENSION [None]
  - PERITONITIS [None]
